FAERS Safety Report 4629694-2 (Version None)
Quarter: 2005Q2

REPORT INFORMATION
  Report Type: 
  Country: None (occurrence: None)
  Receive Date: 20050406
  Receipt Date: 20050401
  Transmission Date: 20051028
  Serious: Yes (Hospitalization)
  Sender: FDA-Public Use
  Company Number: 2005-04-0047

PATIENT
  Age: 62 Year
  Sex: Female

DRUGS (5)
  1. COPPERTONE LOTION SPF 15 LOTION [Suspect]
     Indication: PROPHYLAXIS
     Dosage: TOP-DERM
     Dates: start: 20050305
  2. COPPERTONE LOTION SPF 15 LOTION [Suspect]
     Indication: SUNBURN
     Dosage: TOP-DERM
     Dates: start: 20050305
  3. ENALAPRIL [Concomitant]
  4. CARBAMAZEPINE [Concomitant]
  5. ANTIBIOTIC [Concomitant]

REACTIONS (4)
  - CONFUSIONAL STATE [None]
  - DRUG INEFFECTIVE [None]
  - MEMORY IMPAIRMENT [None]
  - STEVENS-JOHNSON SYNDROME [None]
